FAERS Safety Report 7130843-5 (Version None)
Quarter: 2010Q4

REPORT INFORMATION
  Report Type: 
  Country: None (occurrence: None)
  Receive Date: 20101201
  Receipt Date: 20101123
  Transmission Date: 20110411
  Serious: Yes (Death)
  Sender: FDA-Public Use
  Company Number: EC-ROCHE-743822

PATIENT
  Sex: Female
  Weight: 61.2 kg

DRUGS (2)
  1. HERCEPTIN [Suspect]
     Dosage: DOSE REPORTED AS 21 MG/ML
     Route: 042
     Dates: start: 20100502
  2. METOCLOPRAMIDE [Concomitant]
     Indication: ANTIEMETIC SUPPORTIVE CARE
     Dosage: FREQUENCY REPORTED AS ONCE EVERY INFUSION
     Route: 042
     Dates: start: 20100502

REACTIONS (1)
  - MALIGNANT NEOPLASM PROGRESSION [None]
